FAERS Safety Report 4726130-2 (Version None)
Quarter: 2005Q3

REPORT INFORMATION
  Report Type: 
  Country: None (occurrence: None)
  Receive Date: 20050727
  Receipt Date: 20050719
  Transmission Date: 20060218
  Serious: Yes (Other)
  Sender: FDA-Public Use
  Company Number: PHBS2005FR10369

PATIENT
  Age: 22 Year
  Sex: Male

DRUGS (5)
  1. CYCLOSPORINE [Suspect]
     Indication: RENAL TRANSPLANT
     Route: 042
  2. AZATHIOPRINE [Suspect]
     Indication: RENAL TRANSPLANT
  3. CORTICOSTEROIDS [Concomitant]
  4. ATGAM [Concomitant]
  5. MYCOPHENOLATE MOFETIL [Suspect]
     Dates: start: 19961001

REACTIONS (5)
  - DIALYSIS [None]
  - DISEASE RECURRENCE [None]
  - GASTROINTESTINAL DISORDER [None]
  - GLOMERULONEPHRITIS FOCAL [None]
  - PROTEINURIA [None]
